FAERS Safety Report 8592627-0 (Version None)
Quarter: 2012Q3

REPORT INFORMATION
  Report Type: 
  Country: None (occurrence: None)
  Receive Date: 20120814
  Receipt Date: 20120808
  Transmission Date: 20120928
  Serious: Yes (Other)
  Sender: FDA-Public Use
  Company Number: US-PFIZER INC-2012193747

PATIENT
  Age: 52 Year
  Sex: Female

DRUGS (3)
  1. PRAVASTATIN SODIUM [Concomitant]
     Dosage: 40 MG, UNK
  2. DILANTIN [Suspect]
     Dosage: 300 MG, 1X/DAY
     Route: 048
  3. LEVOTHYROXINE SODIUM [Concomitant]
     Dosage: 150 UG, UNK

REACTIONS (3)
  - HYPERLIPIDAEMIA [None]
  - HYPOTHYROIDISM [None]
  - CONVULSION [None]
